FAERS Safety Report 9028458 (Version 4)
Quarter: 2013Q2

REPORT INFORMATION
  Report Type: Report from Study
  Country: JP (occurrence: JP)
  Receive Date: 20130124
  Receipt Date: 20130524
  Transmission Date: 20140414
  Serious: Yes (Other)
  Sender: FDA-Public Use
  Company Number: JP-JNJFOC-20130110581

PATIENT
  Age: 59 Year
  Sex: Male
  Weight: 62 kg

DRUGS (13)
  1. STELARA [Suspect]
     Indication: PSORIASIS
     Route: 058
     Dates: start: 20130403
  2. STELARA [Suspect]
     Indication: PSORIASIS
     Route: 058
     Dates: start: 20130109
  3. STELARA [Suspect]
     Indication: PSORIASIS
     Route: 058
     Dates: start: 20121010
  4. STELARA [Suspect]
     Indication: PSORIASIS
     Route: 058
     Dates: start: 20120719
  5. STELARA [Suspect]
     Indication: PSORIASIS
     Route: 058
     Dates: start: 20120425
  6. STELARA [Suspect]
     Indication: PSORIASIS
     Route: 058
     Dates: start: 20120327
  7. OXAROL [Concomitant]
     Indication: PSORIASIS
     Route: 061
     Dates: end: 20130108
  8. BONALFA [Concomitant]
     Indication: PSORIASIS
     Route: 061
     Dates: end: 20130108
  9. MYSER [Concomitant]
     Indication: PSORIASIS
     Route: 061
     Dates: end: 20130108
  10. NERISONA [Concomitant]
     Indication: PSORIASIS
     Route: 061
     Dates: end: 20130108
  11. LOCOID [Concomitant]
     Indication: PSORIASIS
     Route: 061
  12. NIZORAL [Concomitant]
     Indication: PSORIASIS
     Route: 061
  13. DALACIN T [Concomitant]
     Route: 061

REACTIONS (1)
  - Gamma-glutamyltransferase increased [Unknown]
